FAERS Safety Report 6603116-4 (Version None)
Quarter: 2010Q1

REPORT INFORMATION
  Report Type: 
  Country: None (occurrence: None)
  Receive Date: 20100226
  Receipt Date: 20100224
  Transmission Date: 20100710
  Serious: Yes (Life-Threatening, Hospitalization, Other)
  Sender: FDA-Public Use
  Company Number: PHHO2009US11775

PATIENT
  Sex: Male

DRUGS (14)
  1. STI571/CGP57148B T35717+TAB [Suspect]
     Indication: CHRONIC MYELOID LEUKAEMIA
     Dosage: 400 MG, QD
     Route: 048
     Dates: start: 20061115, end: 20090218
  2. ASPIRIN [Concomitant]
  3. DIOVAN [Concomitant]
  4. PROSCAR [Concomitant]
  5. MONOPRIL [Concomitant]
  6. FLOMOX [Concomitant]
  7. TOPROL-XL [Concomitant]
  8. ADVAIR DISKUS 100/50 [Concomitant]
  9. NORCO [Concomitant]
  10. PROTONIX [Concomitant]
  11. ATROVENT [Concomitant]
  12. ALBUTEROL [Concomitant]
  13. NITROGLYCERIN [Concomitant]
  14. VENTOLIN [Concomitant]

REACTIONS (40)
  - ACUTE LYMPHOCYTIC LEUKAEMIA [None]
  - ANAEMIA [None]
  - ASTHENIA [None]
  - ATRIAL FIBRILLATION [None]
  - BACTERIAL INFECTION [None]
  - BAND NEUTROPHIL COUNT DECREASED [None]
  - BLAST CRISIS IN MYELOGENOUS LEUKAEMIA [None]
  - BODY TEMPERATURE INCREASED [None]
  - CARDIAC FAILURE [None]
  - CARDIAC FAILURE CONGESTIVE [None]
  - CHEST PAIN [None]
  - CHRONIC MYELOID LEUKAEMIA [None]
  - CONDITION AGGRAVATED [None]
  - CONSTIPATION [None]
  - DIASTOLIC DYSFUNCTION [None]
  - DYSPNOEA [None]
  - DYSPNOEA PAROXYSMAL NOCTURNAL [None]
  - FATIGUE [None]
  - FEBRILE NEUTROPENIA [None]
  - FLUID OVERLOAD [None]
  - GRANULOCYTES ABNORMAL [None]
  - HYPERURICAEMIA [None]
  - LEUKOPENIA [None]
  - MARROW HYPERPLASIA [None]
  - MEGAKARYOCYTES ABNORMAL [None]
  - MYELODYSPLASTIC SYNDROME [None]
  - ORTHOPNOEA [None]
  - PAIN IN EXTREMITY [None]
  - PANCYTOPENIA [None]
  - PLATELET COUNT DECREASED [None]
  - PLEURAL EFFUSION [None]
  - POIKILOCYTOSIS [None]
  - PRODUCTIVE COUGH [None]
  - PULMONARY CONGESTION [None]
  - RALES [None]
  - SINUS TACHYCARDIA [None]
  - THROMBOCYTOPENIA [None]
  - VENTRICULAR EXTRASYSTOLES [None]
  - WHITE BLOOD CELL COUNT DECREASED [None]
  - WHITE BLOOD CELL MORPHOLOGY ABNORMAL [None]
